FAERS Safety Report 11169704 (Version 1)
Quarter: 2015Q2

REPORT INFORMATION
  Report Type: Report from Study
  Country: NL (occurrence: NL)
  Receive Date: 20150605
  Receipt Date: 20150605
  Transmission Date: 20150821
  Serious: Yes (Other)
  Sender: FDA-Public Use
  Company Number: NL-AMGEN-NLDSL2015054204

PATIENT
  Age: 55 Year
  Sex: Female

DRUGS (10)
  1. METOCLOPRAMIDE. [Concomitant]
     Active Substance: METOCLOPRAMIDE
     Dosage: 10 MG, QD
     Route: 048
     Dates: start: 20150106
  2. COLECALCIFEROL [Concomitant]
     Active Substance: CHOLECALCIFEROL
     Dosage: 1.25G/440 IE (500 MG)
  3. XELODA [Concomitant]
     Active Substance: CAPECITABINE
     Indication: BREAST CANCER
  4. CALCIUMCARBONAT [Concomitant]
     Dosage: 1.25G/440 IE (500 MG)
  5. ARIMIDEX [Concomitant]
     Active Substance: ANASTROZOLE
  6. OXYCODON [Concomitant]
     Active Substance: OXYCODONE
     Dosage: 10 MG, QD
     Route: 048
     Dates: start: 20150421, end: 20150421
  7. FEC [Concomitant]
     Active Substance: CYCLOPHOSPHAMIDE\EPIRUBICIN HYDROCHLORIDE\FLUOROURACIL
     Indication: BREAST CANCER
  8. TAXOL [Concomitant]
     Active Substance: PACLITAXEL
     Indication: BREAST CANCER
  9. XGEVA [Suspect]
     Active Substance: DENOSUMAB
     Indication: PRODUCT USED FOR UNKNOWN INDICATION
     Dosage: 120 MG, Q4WK
     Route: 058
     Dates: start: 20131206
  10. AVASTIN [Concomitant]
     Active Substance: BEVACIZUMAB
     Indication: BREAST CANCER

REACTIONS (8)
  - Numb chin syndrome [Unknown]
  - Humerus fracture [Unknown]
  - Trigeminal neuralgia [Unknown]
  - Platelet transfusion [Unknown]
  - Blood product transfusion dependent [Unknown]
  - Pancytopenia [Unknown]
  - Breast cancer [Unknown]
  - Gingival bleeding [Unknown]

NARRATIVE: CASE EVENT DATE: 20140102
